FAERS Safety Report 15861366 (Version 2)
Quarter: 2019Q1

REPORT INFORMATION
  Report Type: Spontaneous
  Country: US (occurrence: US)
  Receive Date: 20190124
  Receipt Date: 20190125
  Transmission Date: 20190417
  Serious: Yes (Other)
  Sender: FDA-Public Use
  Company Number: US-RECKITT BENCKISER HEALTHCARE INT LIMITED-RB-80838-2019

PATIENT
  Age: 88 Year
  Sex: Female

DRUGS (1)
  1. MAXIMUM STRENGTH MUCINEX SINUS-MAX NIGHT (ACETAMINOPHEN\DIPHENHYDRAMINE HYDROCHLORIDE\PHENYLEPHRINE HYDROCHLORIDE) [Suspect]
     Active Substance: ACETAMINOPHEN\DIPHENHYDRAMINE HYDROCHLORIDE\PHENYLEPHRINE HYDROCHLORIDE
     Indication: COUGH
     Dosage: 1 DOSAGE FORM, SINGLE
     Route: 048
     Dates: start: 20190108, end: 20190108

REACTIONS (2)
  - Laryngitis [Not Recovered/Not Resolved]
  - Choking [Recovered/Resolved]

NARRATIVE: CASE EVENT DATE: 201901
